FAERS Safety Report 9276591 (Version 1)
Quarter: 2012Q4

REPORT INFORMATION
  Report Type: Spontaneous
  Country: US (occurrence: None)
  Receive Date: 20121109
  Receipt Date: 20121109
  Transmission Date: 20130627
  Serious: Yes (Hospitalization)
  Sender: FDA-Public Use
  Company Number: 2012S1000686

PATIENT
  Age: 77 Year
  Sex: Male

DRUGS (1)
  1. CUBICIN [Suspect]
     Indication: STAPHYLOCOCCUS AUREUS BACTEREMIA

REACTIONS (8)
  - Pyrexia [None]
  - Cardiac failure acute [None]
  - Cardiac murmur [None]
  - Aortic valve incompetence [None]
  - Cardiac valve vegetation [None]
  - Mitral valve incompetence [None]
  - Endocarditis [None]
  - Cardiac valve abscess [None]
